FAERS Safety Report 7675605-5 (Version None)
Quarter: 2011Q3

REPORT INFORMATION
  Report Type: 
  Country: None (occurrence: None)
  Receive Date: 20110810
  Receipt Date: 20110803
  Transmission Date: 20111222
  Serious: Yes (Hospitalization, Other)
  Sender: FDA-Public Use
  Company Number: CA-PFIZER INC-2011181201

PATIENT
  Age: 68 Year
  Sex: Female

DRUGS (4)
  1. PANTOPRAZOLE [Concomitant]
  2. TECTA [Suspect]
     Dosage: 40 MG, UNK
     Route: 048
     Dates: end: 20110701
  3. GAVISCON [Concomitant]
  4. NASONEX [Concomitant]
     Dosage: UNK

REACTIONS (16)
  - DYSPNOEA [None]
  - FEELING ABNORMAL [None]
  - LOCALISED OEDEMA [None]
  - HYPERTENSION [None]
  - ABDOMINAL DISCOMFORT [None]
  - EATING DISORDER [None]
  - CHEST DISCOMFORT [None]
  - FEELING HOT [None]
  - HOT FLUSH [None]
  - RASH [None]
  - MALAISE [None]
  - ORAL DISCOMFORT [None]
  - PHARYNGEAL OEDEMA [None]
  - DRY MOUTH [None]
  - EYE SWELLING [None]
  - TONGUE DISORDER [None]
